FAERS Safety Report 6971556-X (Version None)
Quarter: 2010Q3

REPORT INFORMATION
  Report Type: 
  Country: None (occurrence: None)
  Receive Date: 20100908
  Receipt Date: 20100827
  Transmission Date: 20110219
  Serious: Yes (Other)
  Sender: FDA-Public Use
  Company Number: DE-PFIZER INC-2010101874

PATIENT
  Age: 76 Year
  Sex: Male
  Weight: 75 kg

DRUGS (4)
  1. DETRUSITOL [Suspect]
     Dosage: 4 MG, 1X/DAY
     Route: 048
     Dates: start: 20080101
  2. ALFUZOSIN [Concomitant]
     Dosage: 10 MG, 1X/DAY
     Route: 048
     Dates: start: 20050101
  3. FLUVASTATIN [Concomitant]
     Dosage: 20 MG, 1X/DAY
     Route: 048
     Dates: start: 20080101
  4. METOPROLOL SUCCINATE [Concomitant]
     Dosage: 23.75 MG, 2X/DAY (HALF OF 47.5 MG TWICE DAILY)
     Route: 048

REACTIONS (5)
  - CEREBROVASCULAR ACCIDENT [None]
  - PHOTOPHOBIA [None]
  - VISION BLURRED [None]
  - VISUAL IMPAIRMENT [None]
  - VITREOUS OPACITIES [None]
